FAERS Safety Report 4509344-6 (Version None)
Quarter: 2004Q4

REPORT INFORMATION
  Report Type: 
  Country: None (occurrence: None)
  Receive Date: 20041123
  Receipt Date: 20041103
  Transmission Date: 20050328
  Serious: Yes (Hospitalization)
  Sender: FDA-Public Use
  Company Number: US-MERCK-0411USA00750

PATIENT
  Age: 17 Year
  Sex: Male

DRUGS (1)
  1. CANCIDAS [Suspect]
     Indication: FEBRILE NEUTROPENIA
     Route: 042

REACTIONS (2)
  - ADVERSE EVENT [None]
  - STEVENS-JOHNSON SYNDROME [None]
